FAERS Safety Report 15186190 (Version 2)
Quarter: 2019Q1

REPORT INFORMATION
  Report Type: Report from Study
  Country: US (occurrence: US)
  Receive Date: 20180723
  Receipt Date: 20190130
  Transmission Date: 20190417
  Serious: No
  Sender: FDA-Public Use
  Company Number: US-EXELIXIS-CABO-17011746

PATIENT
  Age: 63 Year
  Sex: Female

DRUGS (11)
  1. CABOMETYX [Suspect]
     Active Substance: CABOZANTINIB S-MALATE
     Dosage: 20 MG, QD
     Route: 048
  2. CABOMETYX [Suspect]
     Active Substance: CABOZANTINIB S-MALATE
     Indication: RENAL CANCER
     Dosage: 40 MG, QD
     Route: 048
     Dates: start: 20170521
  3. TYLENOL [Concomitant]
     Active Substance: ACETAMINOPHEN
  4. QVAR [Concomitant]
     Active Substance: BECLOMETHASONE DIPROPIONATE
  5. MULTIVITAMIN [Concomitant]
     Active Substance: VITAMINS
  6. CLOPIDOGREL [Concomitant]
     Active Substance: CLOPIDOGREL BISULFATE
  7. ALPRAZOLAM. [Concomitant]
     Active Substance: ALPRAZOLAM
  8. PROAIR HFA [Concomitant]
     Active Substance: ALBUTEROL SULFATE
  9. METOPROLOL SUCCINATE. [Concomitant]
     Active Substance: METOPROLOL SUCCINATE
  10. LEVOTHYROXIN [Concomitant]
     Active Substance: LEVOTHYROXINE
  11. FLUTICASONE. [Concomitant]
     Active Substance: FLUTICASONE

REACTIONS (2)
  - Fatigue [Unknown]
  - Memory impairment [Unknown]

NARRATIVE: CASE EVENT DATE: 201711
